FAERS Safety Report 12326557 (Version 2)
Quarter: 2016Q2

REPORT INFORMATION
  Report Type: Spontaneous
  Country: US (occurrence: US)
  Receive Date: 20160503
  Receipt Date: 20160505
  Transmission Date: 20160815
  Serious: Yes (Hospitalization)
  Sender: FDA-Public Use
  Company Number: US-BAYER-2016-079217

PATIENT
  Sex: Male
  Weight: 88 kg

DRUGS (2)
  1. CIPRO [Suspect]
     Active Substance: CIPROFLOXACIN HYDROCHLORIDE
     Dosage: UNK
     Route: 048
  2. ZYVOX [Suspect]
     Active Substance: LINEZOLID
     Indication: ABSCESS NECK
     Dosage: 600 MG, BID
     Route: 048

REACTIONS (1)
  - Abscess neck [Not Recovered/Not Resolved]
